FAERS Safety Report 7377837-2 (Version None)
Quarter: 2011Q1

REPORT INFORMATION
  Report Type: 
  Country: None (occurrence: None)
  Receive Date: 20110328
  Receipt Date: 20110321
  Transmission Date: 20110831
  Serious: Yes (Hospitalization)
  Sender: FDA-Public Use
  Company Number: FR-ROCHE-766828

PATIENT
  Sex: Female

DRUGS (2)
  1. MINOCYCLINE HYDROCHLORIDE [Suspect]
     Indication: ACNE
     Route: 048
     Dates: start: 20110121, end: 20110125
  2. APRANAX [Suspect]
     Indication: PAIN
     Route: 048
     Dates: start: 20110126, end: 20110127

REACTIONS (4)
  - ARTHRALGIA [None]
  - RASH PAPULAR [None]
  - ERYTHEMA [None]
  - PYREXIA [None]
